FAERS Safety Report 5526247-9 (Version None)
Quarter: 2007Q4

REPORT INFORMATION
  Report Type: 
  Country: None (occurrence: None)
  Receive Date: 20071127
  Receipt Date: 20071116
  Transmission Date: 20080405
  Serious: Yes (Other)
  Sender: FDA-Public Use
  Company Number: US-JNJFOC-20071107305

PATIENT
  Sex: Male
  Weight: 90.72 kg

DRUGS (9)
  1. DURAGESIC-100 [Suspect]
     Route: 062
  2. DURAGESIC-100 [Suspect]
     Indication: PAIN IN EXTREMITY
     Route: 062
  3. DURAGESIC-100 [Suspect]
     Indication: BACK PAIN
     Route: 062
  4. SKELAXIN [Concomitant]
     Indication: MUSCLE SPASMS
     Route: 065
  5. OXYCODONE HCL [Concomitant]
     Indication: BREAKTHROUGH PAIN
     Dosage: 5/500MG
     Route: 048
  6. PRILOSEC [Concomitant]
     Indication: GASTROOESOPHAGEAL REFLUX DISEASE
     Route: 048
  7. DULCOLAX [Concomitant]
     Indication: ABNORMAL FAECES
     Route: 048
  8. KLONOPIN [Concomitant]
     Indication: NERVOUSNESS
     Route: 048
  9. BUSPAR [Concomitant]
     Indication: ANXIETY
     Route: 048

REACTIONS (7)
  - DIZZINESS [None]
  - DRUG DEPENDENCE [None]
  - DRUG DISPENSING ERROR [None]
  - FEELING ABNORMAL [None]
  - INADEQUATE ANALGESIA [None]
  - PHARMACEUTICAL PRODUCT COMPLAINT [None]
  - SOMNOLENCE [None]
